FAERS Safety Report 6739278-8 (Version None)
Quarter: 2010Q2

REPORT INFORMATION
  Report Type: 
  Country: None (occurrence: None)
  Receive Date: 20100525
  Receipt Date: 20100512
  Transmission Date: 20101027
  Serious: Yes (Hospitalization)
  Sender: FDA-Public Use
  Company Number: PHHY2010AT30449

PATIENT
  Age: 65 Year
  Sex: Male

DRUGS (6)
  1. CGP 57148B T35717+ [Suspect]
     Indication: GASTROINTESTINAL STROMAL TUMOUR
     Dosage: 400 MG, PER DAY
     Route: 048
     Dates: start: 20100212
  2. ACCUZIDE [Suspect]
     Indication: HYPERTENSION
     Dosage: UNK
     Dates: start: 20050101, end: 20100509
  3. ALNA [Concomitant]
     Indication: BENIGN PROSTATIC HYPERPLASIA
     Dosage: 0.4 MG, PER DAY
     Dates: start: 20050101
  4. ACEMIN [Concomitant]
     Indication: HYPERTENSION
     Dosage: 5 MG, PER DAY
     Dates: start: 20100510
  5. AQUAPHORIL [Concomitant]
     Indication: HYPERTENSION
     Dosage: UNK
     Dates: start: 20100510
  6. XIPAMIDE [Concomitant]
     Indication: HYPERTENSION
     Dosage: 40 MG, PER DAY
     Dates: start: 20100510

REACTIONS (2)
  - ECZEMA [None]
  - RASH [None]
